FAERS Safety Report 4614884-5 (Version None)
Quarter: 2005Q1

REPORT INFORMATION
  Report Type: 
  Country: None (occurrence: None)
  Receive Date: 20050318
  Receipt Date: 20050318
  Transmission Date: 20050727
  Serious: Yes (Hospitalization)
  Sender: FDA-Public Use
  Company Number: None

PATIENT
  Age: 66 Year
  Sex: Male

DRUGS (15)
  1. GLYBURIDE [Suspect]
     Indication: DIABETES MELLITUS
     Dosage: 5MG PO QD
     Route: 048
     Dates: start: 20050108, end: 20050108
  2. GATIFLOXACIN [Suspect]
     Indication: PNEUMONIA
     Dosage: 400MG PO QD
     Route: 048
     Dates: start: 20050108, end: 20050109
  3. ADVAIR DISKUS 100/50 [Concomitant]
  4. ALBUTEROL [Concomitant]
  5. ALLOPURINOL [Concomitant]
  6. DILTIAZEM [Concomitant]
  7. EPO [Concomitant]
  8. FUROSEMIDE [Concomitant]
  9. ATROVENT [Concomitant]
  10. REGLAN [Concomitant]
  11. MULTI-VITAMIN [Concomitant]
  12. POTASSIUM CHLORIDE [Concomitant]
  13. PROMETHAZINE [Concomitant]
  14. THEOPHYLLINE [Concomitant]
  15. COUMADIN [Concomitant]

REACTIONS (1)
  - BLOOD GLUCOSE DECREASED [None]
